FAERS Safety Report 8089334-X (Version None)
Quarter: 2012Q1

REPORT INFORMATION
  Report Type: 
  Country: None (occurrence: None)
  Receive Date: 20120128
  Receipt Date: 20110722
  Transmission Date: 20120608
  Serious: No
  Sender: FDA-Public Use
  Company Number: US-ABBOTT-11P-163-0835767-00

PATIENT
  Age: 70 Year
  Sex: Female

DRUGS (4)
  1. HUMIRA [Suspect]
     Indication: PUSTULAR PSORIASIS
     Dates: start: 20110401
  2. HYDROXEA [Concomitant]
     Indication: SLEEP DISORDER
     Dosage: 1/4 TABLET AT BEDTIME
  3. HUMIRA [Suspect]
  4. HYDROXEA [Concomitant]
     Indication: PRURITUS

REACTIONS (7)
  - NASOPHARYNGITIS [None]
  - DRUG DOSE OMISSION [None]
  - PUSTULAR PSORIASIS [None]
  - RASH PAPULAR [None]
  - STRESS [None]
  - PSORIASIS [None]
  - PRURITUS [None]
